FAERS Safety Report 7246852-1 (Version None)
Quarter: 2011Q1

REPORT INFORMATION
  Report Type: 
  Country: None (occurrence: None)
  Receive Date: 20110127
  Receipt Date: 20110125
  Transmission Date: 20110831
  Serious: Yes (Other)
  Sender: FDA-Public Use
  Company Number: US-PFIZER INC-2011002117

PATIENT
  Sex: Male

DRUGS (1)
  1. CHANTIX [Suspect]
     Indication: SMOKING CESSATION THERAPY
     Dosage: UNK
     Route: 048

REACTIONS (6)
  - INSOMNIA [None]
  - MOOD ALTERED [None]
  - DYSPHONIA [None]
  - ABNORMAL DREAMS [None]
  - MENTAL DISORDER [None]
  - DEPRESSION [None]
